FAERS Safety Report 6622287-7 (Version None)
Quarter: 2010Q1

REPORT INFORMATION
  Report Type: 
  Country: None (occurrence: None)
  Receive Date: 20100310
  Receipt Date: 20100223
  Transmission Date: 20100710
  Serious: Yes (Hospitalization, Disabling, Other)
  Sender: FDA-Public Use
  Company Number: US-ELI_LILLY_AND_COMPANY-US200911005412

PATIENT
  Sex: Female

DRUGS (11)
  1. FORTEO [Suspect]
     Indication: OSTEOPOROSIS
     Dosage: 20 UG, DAILY (1/D)
     Dates: start: 20091118, end: 20100101
  2. ENBREL [Concomitant]
     Dosage: 50 MG, WEEKLY (1/W)
     Route: 030
     Dates: start: 20090201
  3. METHOTREXATE [Concomitant]
     Dosage: UNK, WEEKLY (1/W) 40 OR 50 MG
  4. PREDNISONE [Concomitant]
     Dosage: 15 MG, DAILY (1/D)
     Dates: start: 20100215
  5. CALCIUM [Concomitant]
     Dosage: 1200 MG, 2/D
  6. POTASSIUM [Concomitant]
  7. PULMICORT [Concomitant]
     Route: 055
  8. ALBUTEROL [Concomitant]
     Route: 055
  9. FOLIC ACID [Concomitant]
  10. VITAMIN D [Concomitant]
     Dosage: 2000 MG, DAILY (1/D)
  11. MAGNESIUM [Concomitant]
     Dosage: UNK, UNK
     Dates: start: 20100201

REACTIONS (10)
  - ARTHRITIS [None]
  - BLINDNESS [None]
  - DIARRHOEA [None]
  - DIZZINESS [None]
  - GAIT DISTURBANCE [None]
  - GASTRITIS [None]
  - MALAISE [None]
  - NAUSEA [None]
  - VISUAL ACUITY REDUCED [None]
  - VOMITING [None]
